FAERS Safety Report 9683364 (Version 4)
Quarter: 2013Q4

REPORT INFORMATION
  Report Type: Report from Study
  Country: US (occurrence: US)
  Receive Date: 20131112
  Receipt Date: 20131231
  Transmission Date: 20140711
  Serious: Yes (Hospitalization, Other)
  Sender: FDA-Public Use
  Company Number: US-ROCHE-1296597

PATIENT
  Age: 28 Year
  Sex: Female

DRUGS (6)
  1. MYCOPHENOLATE MOFETIL [Suspect]
     Indication: LUPUS NEPHRITIS
     Route: 048
     Dates: start: 200912, end: 201101
  2. MYCOPHENOLATE MOFETIL [Suspect]
     Indication: SYSTEMIC LUPUS ERYTHEMATOSUS
     Route: 048
     Dates: start: 201106, end: 20131025
  3. MYCOPHENOLATE MOFETIL [Suspect]
     Indication: PROTEINURIA
  4. COUMADIN [Suspect]
     Indication: ANTICOAGULANT THERAPY
     Route: 048
     Dates: start: 2008
  5. COUMADIN [Suspect]
     Indication: ANTIPHOSPHOLIPID SYNDROME
  6. CYTOXAN [Concomitant]
     Route: 065

REACTIONS (3)
  - Vaginal haemorrhage [Recovered/Resolved]
  - Human chorionic gonadotropin positive [Recovered/Resolved]
  - Exposure during pregnancy [Unknown]
